FAERS Safety Report 21289902 (Version 6)
Quarter: 2024Q2

REPORT INFORMATION
  Report Type: Report from Study
  Country: US (occurrence: US)
  Receive Date: 20220902
  Receipt Date: 20240401
  Transmission Date: 20240715
  Serious: No
  Sender: FDA-Public Use
  Company Number: US-NOVARTISTESTPH-NVSC2022US198383

PATIENT
  Sex: Male

DRUGS (3)
  1. ENTRESTO [Suspect]
     Active Substance: SACUBITRIL\VALSARTAN
     Indication: Product used for unknown indication
     Dosage: 1 DOSAGE FORM, BID (49/51 MG)
     Route: 048
     Dates: start: 20220815
  2. LASIX [Concomitant]
     Active Substance: FUROSEMIDE
     Indication: Product used for unknown indication
     Dosage: UNK
     Route: 065
  3. SPIRONOLACTONE [Concomitant]
     Active Substance: SPIRONOLACTONE
     Indication: Product used for unknown indication
     Dosage: UNK, QD
     Route: 065

REACTIONS (5)
  - Illness [Recovering/Resolving]
  - Abdominal discomfort [Recovering/Resolving]
  - Stress [Unknown]
  - Cough [Unknown]
  - Product dose omission issue [Unknown]
